FAERS Safety Report 11473111 (Version 1)
Quarter: 2015Q3

REPORT INFORMATION
  Report Type: Spontaneous
  Country: US (occurrence: US)
  Receive Date: 20150908
  Receipt Date: 20150908
  Transmission Date: 20151125
  Serious: Yes (Other)
  Sender: FDA-Public Use
  Company Number: US-JAZZ-2014-US-013903

PATIENT
  Sex: Male
  Weight: 67.12 kg

DRUGS (5)
  1. OTHER PSYCHOSTIMULANTS AND NOOTROPICS [Concomitant]
     Active Substance: UNSPECIFIED INGREDIENT
     Indication: SOMNOLENCE
     Route: 048
  2. LEVOTHYROXINE. [Concomitant]
     Active Substance: LEVOTHYROXINE
     Indication: HYPOTHYROIDISM
     Route: 048
  3. XYREM [Suspect]
     Active Substance: SODIUM OXYBATE
     Indication: NARCOLEPSY
     Dosage: 2.25 G, BID
     Route: 048
     Dates: start: 200303, end: 200303
  4. XYREM [Suspect]
     Active Substance: SODIUM OXYBATE
     Indication: SOMNOLENCE
     Dosage: 4 G, 2 TO 3 TIMES A NIGHT
     Route: 048
     Dates: start: 200303
  5. XYREM [Suspect]
     Active Substance: SODIUM OXYBATE
     Dosage: 4.5 G, BID
     Route: 048
     Dates: start: 201409

REACTIONS (1)
  - Sleep apnoea syndrome [Recovered/Resolved]
